FAERS Safety Report 16795249 (Version 1)
Quarter: 2019Q3

REPORT INFORMATION
  Report Type: Spontaneous
  Country: AU (occurrence: AU)
  Receive Date: 20190911
  Receipt Date: 20190911
  Transmission Date: 20191005
  Serious: Yes (Other)
  Sender: FDA-Public Use
  Company Number: AU-ASTRAZENECA-2019SF29265

PATIENT
  Age: 38 Year
  Sex: Male

DRUGS (3)
  1. QUETIAPINE. [Suspect]
     Active Substance: QUETIAPINE
     Route: 048
  2. CITALOPRAM [Suspect]
     Active Substance: CITALOPRAM HYDROBROMIDE
     Route: 065
  3. CLOPINE [Suspect]
     Active Substance: CLOZAPINE
     Route: 065

REACTIONS (13)
  - Condition aggravated [Unknown]
  - Dyskinesia [Unknown]
  - Dystonia [Unknown]
  - Catatonia [Unknown]
  - Left ventricular hypertrophy [Unknown]
  - Slow response to stimuli [Unknown]
  - Urinary incontinence [Unknown]
  - Neuroleptic malignant syndrome [Unknown]
  - Tachycardia [Unknown]
  - Hyperhidrosis [Unknown]
  - Agitation [Unknown]
  - Social avoidant behaviour [Unknown]
  - Tremor [Unknown]
